FAERS Safety Report 10304461 (Version 1)
Quarter: 2014Q3

REPORT INFORMATION
  Report Type: Report from Study
  Country: US (occurrence: US)
  Receive Date: 20140715
  Receipt Date: 20140715
  Transmission Date: 20150326
  Serious: Yes (Disabling, Other)
  Sender: FDA-Public Use
  Company Number: US-ALEXION PHARMACEUTICALS INC.-A201402703

PATIENT

DRUGS (1)
  1. SOLIRIS [Suspect]
     Active Substance: ECULIZUMAB
     Indication: HAEMOLYTIC URAEMIC SYNDROME
     Dosage: 1200 MG, Q2W
     Route: 042
     Dates: start: 20130622

REACTIONS (12)
  - Visual field defect [Recovering/Resolving]
  - Thrombotic microangiopathy [Unknown]
  - Respiratory failure [Unknown]
  - Mental status changes [Not Recovered/Not Resolved]
  - Confusional state [Unknown]
  - Vomiting [Unknown]
  - Visual impairment [Recovering/Resolving]
  - Abdominal pain [Unknown]
  - Fatigue [Unknown]
  - Nausea [Unknown]
  - Encephalopathy [Unknown]
  - Colitis [Unknown]

NARRATIVE: CASE EVENT DATE: 20130712
